FAERS Safety Report 15839271 (Version 1)
Quarter: 2019Q1

REPORT INFORMATION
  Report Type: Spontaneous
  Country: CH (occurrence: CH)
  Receive Date: 20190117
  Receipt Date: 20190117
  Transmission Date: 20190417
  Serious: Yes (Hospitalization)
  Sender: FDA-Public Use
  Company Number: CH-JNJFOC-20190116912

PATIENT
  Age: 27 Year
  Sex: Female

DRUGS (6)
  1. OLOGYN [Concomitant]
     Indication: ORAL CONTRACEPTION
     Dosage: FOR SEVERAL YEARS
     Route: 048
  2. AMOXICILLIN W/CLAVULANIC ACID [Concomitant]
     Active Substance: AMOXICILLIN\CLAVULANIC ACID
     Indication: PHARYNGITIS
     Route: 048
     Dates: start: 20181212, end: 20181218
  3. TILUR [Suspect]
     Active Substance: ACEMETACIN
     Indication: PAIN
     Route: 048
     Dates: start: 20181022, end: 20181217
  4. ENTEROCOCCUS FAECIUM [Concomitant]
     Active Substance: ENTEROCOCCUS FAECIUM
     Indication: PROPHYLAXIS
     Route: 048
     Dates: start: 20181212
  5. NOVALGIN (METAMIZOLE SODIUM) [Suspect]
     Active Substance: METAMIZOLE SODIUM
     Indication: PAIN
     Route: 048
     Dates: start: 20181212, end: 20181217
  6. XARELTO [Suspect]
     Active Substance: RIVAROXABAN
     Indication: PROPHYLAXIS
     Route: 048
     Dates: start: 20181130, end: 20181220

REACTIONS (1)
  - Agranulocytosis [Recovered/Resolved]

NARRATIVE: CASE EVENT DATE: 20181206
